FAERS Safety Report 7363914-9 (Version None)
Quarter: 2011Q1

REPORT INFORMATION
  Report Type: 
  Country: None (occurrence: None)
  Receive Date: 20110321
  Receipt Date: 20110208
  Transmission Date: 20110831
  Serious: No
  Sender: FDA-Public Use
  Company Number: US-BAYER-2011-014849

PATIENT
  Age: 80 Year
  Sex: Male
  Weight: 73 kg

DRUGS (4)
  1. AVANDIA [Concomitant]
  2. ALEVE (CAPLET) [Suspect]
     Indication: MUSCULOSKELETAL PAIN
     Dosage: BOTTLE COUNT 250S
     Route: 048
     Dates: start: 20110101
  3. ASPIRIN [Concomitant]
     Dosage: 325 MG, UNK
     Route: 048
  4. RANITIDINE [Concomitant]

REACTIONS (1)
  - MUSCULOSKELETAL PAIN [None]
